FAERS Safety Report 4284242-4 (Version None)
Quarter: 2004Q1

REPORT INFORMATION
  Report Type: 
  Country: None (occurrence: None)
  Receive Date: 20040203
  Receipt Date: 20040127
  Transmission Date: 20041129
  Serious: Yes (Hospitalization)
  Sender: FDA-Public Use
  Company Number: US-ROCHE-357440

PATIENT
  Age: 47 Year
  Sex: Female
  Weight: 61.2 kg

DRUGS (3)
  1. TORADOL [Suspect]
     Route: 030
     Dates: start: 20031230, end: 20031230
  2. ESTRACE [Concomitant]
     Dosage: DRUG REPORTED AS ESTRAC.  RECEIVED DAILY.
     Route: 048
  3. VIOXX [Concomitant]
     Indication: PAIN
     Route: 048

REACTIONS (7)
  - ANAPHYLACTIC REACTION [None]
  - CARDIAC FAILURE CONGESTIVE [None]
  - HEADACHE [None]
  - HYPERSENSITIVITY [None]
  - HYPOTENSION [None]
  - MYOCARDIAL INFARCTION [None]
  - PULMONARY OEDEMA [None]
